FAERS Safety Report 8835693 (Version 1)
Quarter: 2012Q4

REPORT INFORMATION
  Report Type: 
  Country: GB (occurrence: GB)
  Receive Date: 20121011
  Receipt Date: 20121011
  Transmission Date: 20130627
  Serious: Yes (Disabling)
  Sender: FDA-Public Use
  Company Number: GB-WATSON-2012-17004

PATIENT
  Age: 36 Year
  Sex: Female
  Weight: 105.68 kg

DRUGS (4)
  1. SIMVASTATIN (UNKNOWN) [Suspect]
     Indication: BLOOD CHOLESTEROL INCREASED
     Dosage: 40 mg, daily
     Route: 048
     Dates: start: 20120420, end: 20120916
  2. RAMIPRIL [Concomitant]
     Indication: PRODUCT USED FOR UNKNOWN INDICATION
     Dosage: 2.5mg
     Route: 065
  3. SALBUTAMOL [Concomitant]
     Indication: PRODUCT USED FOR UNKNOWN INDICATION
     Dosage: UNK
     Route: 055
  4. SERETIDE [Concomitant]
     Indication: PRODUCT USED FOR UNKNOWN INDICATION
     Dosage: Seretide 100
     Route: 055

REACTIONS (5)
  - Insomnia [Recovering/Resolving]
  - Hunger [Recovering/Resolving]
  - Dyspepsia [Recovering/Resolving]
  - Dizziness [Recovering/Resolving]
  - Pain in extremity [Recovered/Resolved]
